FAERS Safety Report 17851025 (Version 1)
Quarter: 2020Q2

REPORT INFORMATION
  Report Type: Spontaneous
  Country: US (occurrence: US)
  Receive Date: 20200602
  Receipt Date: 20200602
  Transmission Date: 20200714
  Serious: No
  Sender: FDA-Public Use
  Company Number: US-FOUNDATIONCONSUMERHC-2019-US-020972

PATIENT
  Age: 34 Year
  Sex: Female
  Weight: 67.59 kg

DRUGS (5)
  1. ALBUTEROL NEBULIZER [Concomitant]
     Active Substance: ALBUTEROL
  2. UNSPECIFIED STEROID INJECTION [Suspect]
     Active Substance: UNSPECIFIED INGREDIENT
     Dates: start: 20191201, end: 20191201
  3. PLAN B ONE-STEP [Suspect]
     Active Substance: LEVONORGESTREL
     Indication: POST COITAL CONTRACEPTION
     Dosage: 1.5 MG X 2 DOSES
     Route: 048
     Dates: start: 20191023, end: 20191028
  4. ALBUTEROL INHALER [Concomitant]
     Active Substance: ALBUTEROL
  5. UNSPECIFIED ALLERGY PILLS [Concomitant]

REACTIONS (1)
  - Vaginal haemorrhage [Not Recovered/Not Resolved]

NARRATIVE: CASE EVENT DATE: 20191103
